FAERS Safety Report 6707029-9 (Version None)
Quarter: 2010Q2

REPORT INFORMATION
  Report Type: 
  Country: None (occurrence: None)
  Receive Date: 20100503
  Receipt Date: 20100421
  Transmission Date: 20101027
  Serious: Yes (Death, Other)
  Sender: FDA-Public Use
  Company Number: US-GENZYME-CLOF-1000934

PATIENT
  Age: 4 Year
  Sex: Male
  Weight: 15.2 kg

DRUGS (2)
  1. CLOLAR [Suspect]
     Indication: ACUTE LYMPHOCYTIC LEUKAEMIA
     Dosage: 52 MG/M2, QDX5
     Route: 042
     Dates: start: 20100320, end: 20100324
  2. CYTARABINE [Suspect]
     Indication: ACUTE LYMPHOCYTIC LEUKAEMIA
     Dosage: 1 G/M2, QDX5
     Route: 042
     Dates: start: 20100320, end: 20100324

REACTIONS (3)
  - DISEASE PROGRESSION [None]
  - GAMMA-GLUTAMYLTRANSFERASE INCREASED [None]
  - HYPOKALAEMIA [None]
